FAERS Safety Report 21794306 (Version 1)
Quarter: 2022Q4

REPORT INFORMATION
  Report Type: Spontaneous
  Country: US (occurrence: None)
  Receive Date: 20221228
  Receipt Date: 20221228
  Transmission Date: 20230112
  Serious: No
  Sender: FDA-Public Use
  Company Number: None

PATIENT
  Age: 47 Year
  Sex: Female
  Weight: 100.8 kg

DRUGS (5)
  1. HUMIRA [Suspect]
     Active Substance: ADALIMUMAB
     Indication: Rheumatoid arthritis
     Dosage: OTHER FREQUENCY : EVERY OTHER WEEK;?
     Route: 058
     Dates: start: 20221102
  2. DULOXETINE [Concomitant]
     Active Substance: DULOXETINE
     Dates: start: 20221028
  3. FOLIC ACID [Concomitant]
     Active Substance: FOLIC ACID
     Dates: start: 20221028
  4. MELOXICAM [Concomitant]
     Active Substance: MELOXICAM
     Dates: start: 20221028
  5. METHOTREXATE [Concomitant]
     Active Substance: METHOTREXATE
     Dates: start: 20221028

REACTIONS (3)
  - Back pain [None]
  - Insomnia [None]
  - Hypoaesthesia [None]

NARRATIVE: CASE EVENT DATE: 20221227
